FAERS Safety Report 9693570 (Version 15)
Quarter: 2017Q2

REPORT INFORMATION
  Report Type: Report from Study
  Country: CA (occurrence: CA)
  Receive Date: 20131118
  Receipt Date: 20170505
  Transmission Date: 20170830
  Serious: Yes (Other)
  Sender: FDA-Public Use
  Company Number: CA-ROCHE-1302582

PATIENT
  Age: 39 Year
  Sex: Female
  Weight: 65.5 kg

DRUGS (11)
  1. ACTEMRA [Suspect]
     Active Substance: TOCILIZUMAB
     Route: 042
     Dates: start: 20141124, end: 20150317
  2. PANTOLOC [Concomitant]
     Active Substance: PANTOPRAZOLE SODIUM
  3. ACTEMRA [Suspect]
     Active Substance: TOCILIZUMAB
     Route: 042
     Dates: start: 20140819
  4. ACTEMRA [Suspect]
     Active Substance: TOCILIZUMAB
     Route: 042
     Dates: start: 20140127
  5. PREDNISONE. [Concomitant]
     Active Substance: PREDNISONE
  6. PLAQUENIL [Concomitant]
     Active Substance: HYDROXYCHLOROQUINE SULFATE
  7. ACTEMRA [Suspect]
     Active Substance: TOCILIZUMAB
     Indication: RHEUMATOID ARTHRITIS
     Route: 042
     Dates: start: 20130619
  8. ACTEMRA [Suspect]
     Active Substance: TOCILIZUMAB
     Route: 042
  9. ACTEMRA [Suspect]
     Active Substance: TOCILIZUMAB
     Indication: RHEUMATOID ARTHRITIS
     Route: 058
     Dates: start: 20150419
  10. ACTEMRA [Suspect]
     Active Substance: TOCILIZUMAB
     Route: 042
     Dates: start: 20140530
  11. COLACE [Concomitant]
     Active Substance: DOCUSATE SODIUM

REACTIONS (14)
  - Rhinovirus infection [Not Recovered/Not Resolved]
  - Blood pressure decreased [Unknown]
  - Eczema [Recovering/Resolving]
  - Weight decreased [Unknown]
  - Sinusitis [Unknown]
  - Immunodeficiency [Unknown]
  - Viral upper respiratory tract infection [Unknown]
  - Ear infection [Unknown]
  - Wheezing [Unknown]
  - Infusion related reaction [Unknown]
  - Arthralgia [Unknown]
  - Uterine polyp [Not Recovered/Not Resolved]
  - Viral infection [Unknown]
  - Limb traumatic amputation [Recovered/Resolved]

NARRATIVE: CASE EVENT DATE: 2014
